FAERS Safety Report 5514581-8 (Version None)
Quarter: 2007Q4

REPORT INFORMATION
  Report Type: 
  Country: None (occurrence: None)
  Receive Date: 20071113
  Receipt Date: 20071109
  Transmission Date: 20080405
  Serious: Yes (Hospitalization, Other)
  Sender: FDA-Public Use
  Company Number: B0494598A

PATIENT
  Age: 76 Year
  Sex: Female

DRUGS (6)
  1. ROSIGLITAZONE [Suspect]
     Route: 048
     Dates: start: 20070612, end: 20070905
  2. FELODIPINE [Concomitant]
  3. ASPIRIN [Concomitant]
  4. ACETAMINOPHEN [Concomitant]
  5. LISINOPRIL [Concomitant]
  6. BENDROFLUMETHIAZIDE [Concomitant]

REACTIONS (2)
  - CARDIOMEGALY [None]
  - FRACTURE [None]
